FAERS Safety Report 6870947-5 (Version None)
Quarter: 2010Q3

REPORT INFORMATION
  Report Type: 
  Country: None (occurrence: None)
  Receive Date: 20100723
  Receipt Date: 20100712
  Transmission Date: 20110219
  Serious: Yes (Life-Threatening, Hospitalization, Disabling, Other)
  Sender: FDA-Public Use
  Company Number: FR-JNJFOC-20100502812

PATIENT
  Age: 41 Year
  Sex: Male
  Weight: 69 kg

DRUGS (16)
  1. REMICADE [Suspect]
     Indication: ANKYLOSING SPONDYLITIS
     Route: 042
  2. REMICADE [Suspect]
     Route: 042
  3. REMICADE [Suspect]
     Route: 042
  4. REMICADE [Suspect]
     Dosage: ^TWO YEARS AGO^
     Route: 042
  5. REMICADE [Suspect]
     Route: 042
  6. REMICADE [Suspect]
     Route: 042
  7. REMICADE [Suspect]
     Route: 042
  8. REMICADE [Suspect]
     Route: 042
  9. REMICADE [Suspect]
     Route: 042
  10. REMICADE [Suspect]
     Route: 042
  11. REMICADE [Suspect]
     Route: 042
  12. ARAVA [Concomitant]
     Indication: ANKYLOSING SPONDYLITIS
  13. PARACETAMOL [Concomitant]
     Indication: PAIN
     Dosage: 1000 MG TO 4000 MG
  14. SOLUPRED [Concomitant]
     Indication: BRONCHIAL IRRITATION
     Dosage: WITH INCREASING DOSE
  15. SYMBICORT [Concomitant]
     Indication: BRONCHIAL IRRITATION
  16. VENTOLIN [Concomitant]
     Indication: BRONCHIAL IRRITATION

REACTIONS (4)
  - ANKYLOSING SPONDYLITIS [None]
  - BRONCHIAL IRRITATION [None]
  - INFLAMMATION [None]
  - PULMONARY TUBERCULOSIS [None]
